FAERS Safety Report 9416425 (Version 1)
Quarter: 2013Q3

REPORT INFORMATION
  Report Type: Spontaneous
  Country: US (occurrence: US)
  Receive Date: 20130724
  Receipt Date: 20130724
  Transmission Date: 20140515
  Serious: No
  Sender: FDA-Public Use
  Company Number: US-PFIZER INC-2013215642

PATIENT
  Age: 56 Year
  Sex: Male
  Weight: 74.38 kg

DRUGS (3)
  1. LYRICA [Suspect]
     Indication: MUSCLE SPASMS
     Dosage: 75 MG, 3X/DAY
     Dates: end: 20130429
  2. MELOXICAM [Concomitant]
     Indication: PAIN
     Dosage: 50 MG, 1X/DAY
  3. BECLOSPIN [Concomitant]
     Indication: PAIN
     Dosage: 20 MG, 4X/DAY

REACTIONS (1)
  - Pain [Unknown]
